FAERS Safety Report 5024822-1 (Version None)
Quarter: 2006Q2

REPORT INFORMATION
  Report Type: 
  Country: None (occurrence: None)
  Receive Date: 20060426
  Receipt Date: 20060221
  Transmission Date: 20061013
  Serious: Yes (Other)
  Sender: FDA-Public Use
  Company Number: 2006026734

PATIENT
  Age: 59 Year
  Sex: Female

DRUGS (1)
  1. LYRICA [Suspect]
     Indication: NEUROPATHY
     Dates: start: 20060201, end: 20060201

REACTIONS (3)
  - HEART RATE INCREASED [None]
  - HYPERHIDROSIS [None]
  - SENSORY LOSS [None]
